FAERS Safety Report 25944166 (Version 2)
Quarter: 2025Q4

REPORT INFORMATION
  Report Type: Report from Study
  Country: US (occurrence: US)
  Receive Date: 20251021
  Receipt Date: 20251023
  Transmission Date: 20260118
  Serious: No
  Sender: JOHNSON AND JOHNSON
  Company Number: US-JNJFOC-20250947519

PATIENT
  Sex: Female

DRUGS (100)
  1. CISAPRIDE [Suspect]
     Active Substance: CISAPRIDE
     Indication: Gastrooesophageal reflux disease
     Dosage: 10
     Route: 048
     Dates: start: 20010115
  2. CISAPRIDE [Suspect]
     Active Substance: CISAPRIDE
     Indication: Gastrointestinal motility disorder
     Dosage: 10
     Route: 048
     Dates: start: 20250501
  3. NPH INSULIN [Concomitant]
     Active Substance: INSULIN BEEF
     Indication: Type 1 diabetes mellitus
     Dosage: UN UNK 1957 ; 28 MAR 2002 ; OTHER, SPECIFY ; START DATE IS PRIOR TO THE STUDY ; UN UNK 1996 ; 3 MAY
  4. NPH INSULIN [Concomitant]
     Active Substance: INSULIN BEEF
     Indication: Diabetes mellitus
  5. CARDIZEM [Concomitant]
     Active Substance: DILTIAZEM HYDROCHLORIDE
     Indication: Hypertension
     Dosage: UN UNK 1988 ; 10 JAN 2001 ; OTHER, SPECIFY ; START DATE IS PRIOR TO THE STUDY
  6. LOZOL [Concomitant]
     Active Substance: INDAPAMIDE
     Indication: Hypertension
     Dosage: UN UNK 1988 ; 10 JAN 2001 ; OTHER, SPECIFY ; START?DATE IS PRIOR TO THE STUDY
  7. K-DUR [Concomitant]
     Active Substance: POTASSIUM CHLORIDE
     Indication: Anti-VGKC antibody
     Dosage: UN UNK 1995 ; 28 MAR 2001 ; OTHER, SPECIFY ; START DATE IS PRIOR TO THE STUDY
  8. PREMARIN [Concomitant]
     Active Substance: ESTROGENS, CONJUGATED
     Indication: Hormone replacement therapy
     Dosage: UN UNK 1999 ; 1 MAY 2001 ; OTHER, SPECIFY ; START DATE IS PRIOR TO THE STUDY ; HORMONE REPLACEMENT P
  9. PROVERA [Concomitant]
     Active Substance: MEDROXYPROGESTERONE ACETATE
     Indication: Hormone replacement therapy
     Dosage: UN UNK 1994 ; 1 MAY 2001 ; OTHER, SPECIFY ; START DATE IS PRIOR TO THE STUDY
  10. BENADRYL [Concomitant]
     Active Substance: DIPHENHYDRAMINE HYDROCHLORIDE
     Indication: Rhinitis allergic
     Dosage: UN UNK 1993 ; 15 APR 2003 ; OTHER, SPECIFY ; START DATE IS PRIOR TO THE STUDY, 2 MAY 2001 ; 2 MAY 20
  11. IRON [Concomitant]
     Active Substance: IRON
     Indication: Anaemia
     Dosage: 15 JAN 2001 ; 23 JAN 2001, 24 JAN 2001 ; 2 MAY 2001 ;2 MAY 2001 ; 25 MAR 2002, 30 JAN 2003 ; 18 APR
  12. DEMEROL [Concomitant]
     Active Substance: MEPERIDINE HYDROCHLORIDE
     Indication: Analgesic therapy
     Dosage: 18 JAN 2001 ; 18 JAN 2001, 10 JAN 2001 ; 10 JAN 2001,2 MAY 2001 ; 2 MAY , 25 MAR 2002 ; 27 MAR 20022
  13. DEMEROL [Concomitant]
     Active Substance: MEPERIDINE HYDROCHLORIDE
     Indication: Sedation
  14. VERSED [Concomitant]
     Active Substance: MIDAZOLAM HYDROCHLORIDE
     Indication: Sedation
     Dosage: 18 JAN 2001 ; 18 JAN 2001, 10 JAN 2001 ; 10 JAN 2001 , 2 MAY 2001 ; 2 MAY 2001, 25 MAR 2002 ; 25 MAR
  15. VERSED [Concomitant]
     Active Substance: MIDAZOLAM HYDROCHLORIDE
     Indication: Hysterectomy
  16. LIDOCAINE VISCOUS [Concomitant]
     Active Substance: LIDOCAINE HYDROCHLORIDE
     Indication: Analgesic therapy
     Dosage: 18 JAN 2001 ; 18 JAN 2001, 10 JAN 2001 ; 10 JAN 2001
  17. CEFZOLIN [Concomitant]
     Indication: Hysterectomy
     Dosage: 2 MAY 2001
  18. SUFENTA [Concomitant]
     Active Substance: SUFENTANIL CITRATE
     Indication: Hysterectomy
     Dosage: 2 MAY 2001
  19. SIROLIMUS [Concomitant]
     Active Substance: SIROLIMUS
     Indication: Adverse event
     Dosage: 6 DEC 2001 ; 12 DEC 2001. 13 DEC 2001 ; 25 DEC 2001 ; 26 DEC 2001 ; 4 JAN 2002, 5 JAN 2002 ; 9 JAN 2
  20. INFLIXAMAB [Concomitant]
     Indication: Inflammation
     Dosage: 25 MAR 2002 ; 25 MAR 2002
  21. ZENAPAX [Concomitant]
     Active Substance: DACLIZUMAB
     Indication: Prophylaxis
     Dosage: 25 MAR 2002 ; 25 MAR 2002 , 22 APR 2002 ; 22 APR 2002, 2 MAY 2002 ; 2 MAY 2002 ;20 MAY 2002 ; 20 MAY
  22. CEFUROXIME [Concomitant]
     Active Substance: CEFUROXIME
     Indication: Prophylaxis
     Dosage: 25 MAR 2002 ; 25 MAR 2002
  23. FENTANYL [Concomitant]
     Active Substance: FENTANYL
     Indication: Analgesic therapy
     Dosage: 25 MAR 2002 ; 25 MAR 2002
  24. PROGRAF [Concomitant]
     Active Substance: TACROLIMUS
     Indication: Prophylaxis
     Dosage: 5 DEC 2001 ; 10 DEC 2001, 11 DEC 2001 ; 9 JAN 2002, 10 JAN 2002 ; 15 JAN 2002, 16 JAN 2002 ; 14 AUG
  25. VALCYTE [Concomitant]
     Active Substance: VALGANCICLOVIR HYDROCHLORIDE
     Indication: Prophylaxis
     Dosage: 5 DEC 2001 ; 25 MAR 2002, 26 MAR 2002 ; 24 JUN 2002,21 OCT 2002 ; 18 JAN 2003
  26. DAPSONE [Concomitant]
     Active Substance: DAPSONE
     Indication: Prophylaxis
     Dosage: 5 DEC 2001 ; 1 SEP 2004
  27. LOMOTIL [Concomitant]
     Active Substance: ATROPINE SULFATE\DIPHENOXYLATE HYDROCHLORIDE
     Indication: Diarrhoea
     Dosage: 6 MAR 2002 ; 25 MAR 2002, 31 MAR 2002 ; 27 JUN 2002, 28 JUN 2002 ; 15 JAN 2003, 16 JAN 2003 ; 19 APR
  28. MARCAINE [Concomitant]
     Active Substance: BUPIVACAINE HYDROCHLORIDE
     Indication: Anaesthesia
     Dosage: 15 AUG 2003 ; 15 AUG 2003 ;
  29. CELLCEPT [Concomitant]
     Active Substance: MYCOPHENOLATE MOFETIL
     Indication: Prophylaxis
     Dosage: 21 APR 2004 ; 8 JUN 2004, 9 JUN 2004 ; 11 JUN 2004, 12 JUN 2004 ; 23 JUL 2004
  30. FERROUS SULFATE [Concomitant]
     Active Substance: FERROUS SULFATE
     Indication: Iron deficiency anaemia
     Dosage: 20 APR 2004 ; 1 AUG 2004
  31. PRO-TOPIC [Concomitant]
     Indication: Rash
     Dosage: 18 MAR 2004 ; 5 APR 2004
  32. BISMUTH [Concomitant]
     Active Substance: BISMUTH SUBSALICYLATE
     Indication: Diarrhoea
     Dosage: 25-SEP-2019
  33. BITAL [Concomitant]
     Indication: Migraine
     Dosage: 19 MAR 2018
  34. ZANTAC [Concomitant]
     Active Substance: RANITIDINE HYDROCHLORIDE
     Indication: Diarrhoea
     Dosage: 15 MAR 2017
  35. ZANTAC [Concomitant]
     Active Substance: RANITIDINE HYDROCHLORIDE
     Indication: Gastrooesophageal reflux disease
     Dosage: 21 SEP 2016
  36. HYOSCYAMINE [Concomitant]
     Active Substance: HYOSCYAMINE
     Indication: Abdominal distension
     Dosage: 23 FEB 2010, 08 APR 2008
  37. HYOSCYAMINE [Concomitant]
     Active Substance: HYOSCYAMINE
     Indication: Muscle spasms
  38. PEPCID [Concomitant]
     Active Substance: FAMOTIDINE
     Indication: Gastrooesophageal reflux disease
     Dosage: 14 SEP 2016 ; 22 SEP 2016 ;
  39. ZEGERID [Concomitant]
     Active Substance: OMEPRAZOLE\SODIUM BICARBONATE
     Indication: Gastrooesophageal reflux disease
     Dosage: 14 SEP 2016
  40. VITAMIN D3 [Concomitant]
     Active Substance: CHOLECALCIFEROL
     Indication: Vitamin supplementation
     Dosage: 14 SEP 2016
  41. MUCINEX [Concomitant]
     Active Substance: GUAIFENESIN
     Indication: Hypersensitivity
     Dosage: 14 MAR 2016
  42. MUCINEX [Concomitant]
     Active Substance: GUAIFENESIN
     Dosage: 14 MAR 2016
  43. ACIPHEX [Concomitant]
     Active Substance: RABEPRAZOLE SODIUM
     Indication: Flatulence
     Dosage: 08 APR 2007,
  44. ZOCOR [Concomitant]
     Active Substance: SIMVASTATIN
     Indication: Hyperlipidaemia
     Dosage: 10 OCT 2000 ; 16 AUG 2002
  45. VITAMIN E [Concomitant]
     Active Substance: .ALPHA.-TOCOPHEROL
     Indication: Nutritional supplementation
     Dosage: 4 NOV 2001 ; 25 MAR 2002, 29 MAR 2002 ; 5 JUN 2003, 25 AUG 2003 ; 24 AUG 2004, 25 AUG 2003 25 AUG 20
  46. DIOVAN [Concomitant]
     Active Substance: VALSARTAN
     Indication: Hypertension
     Dosage: 4 NOV 2001 ; 11 APR 2002 , 1 APR 2002 ; 3 JUN 2002
  47. VIVELLE [Concomitant]
     Active Substance: ESTRADIOL
     Indication: Menopause
     Dosage: 2 MAY 2001 ; 6 FEB 2003 7 FEB 2003
  48. VIVELLE [Concomitant]
     Active Substance: ESTRADIOL
     Indication: Hormone replacement therapy
  49. GATOFLOXACIN [Concomitant]
     Indication: Bacterial infection
     Dosage: 27 MAR 2002 ; 29 MAR 2002, 30 MAR 2002 ; 2 APR 2002
  50. DRAMAMINE [Concomitant]
     Active Substance: DIMENHYDRINATE
     Indication: Nausea
     Dosage: 26 MAR 2002 ; 27 MAR 2002, 20 OCT 2002 ; 20 OCT 2002 ,16 AUG 2003 ; 18 AUG 2003
  51. DRAMAMINE [Concomitant]
     Active Substance: DIMENHYDRINATE
     Indication: Vomiting
  52. VITAMIN A [Concomitant]
     Active Substance: VITAMIN A
     Indication: Antioxidant therapy
     Dosage: 26 MAR 2002 ; 27 MAR 2002, 20 OCT 2002 ; 20 OCT 2002 ,16 AUG 2003 ; 18 AUG 2003
  53. VITAMIN B6 [Concomitant]
     Active Substance: PYRIDOXINE HYDROCHLORIDE
     Indication: Antioxidant therapy
     Dosage: 1 APR 2002 ; 30 APR 2004
  54. VITAMIN C [Concomitant]
     Active Substance: ASCORBIC ACID
     Indication: Antioxidant therapy
     Dosage: 1 APR 2002 ; 3 JUN 2003
  55. LASIX [Concomitant]
     Active Substance: FUROSEMIDE
     Indication: Oedema
     Dosage: 29 MAR 2002 ; 29 MAR 2002
  56. MAGNESIUM OXIDE [Concomitant]
     Active Substance: MAGNESIUM OXIDE
     Indication: Hypomagnesaemia
     Dosage: 28 MAR 2002 ; 1 APR 200
  57. K-DUR [Concomitant]
     Active Substance: POTASSIUM CHLORIDE
     Indication: Hypokalaemia
     Dosage: 28 MAR 2002 ; 1 APR 2002, 1 APR 2002
  58. AMPICILLIN [Concomitant]
     Active Substance: AMPICILLIN
     Indication: Bacterial infection
  59. CEFTIN [Concomitant]
     Active Substance: CEFUROXIME AXETIL
     Indication: Sinusitis
     Dosage: 5 FEB 2002 ; 14 FEB 2002
  60. PROFEN [Concomitant]
     Active Substance: DEXTROMETHORPHAN HYDRIODIDE\DEXTROMETHORPHAN HYDROBROMIDE\GUAIFENESIN\PSEUDOEPHEDRINE HYDROCHLORIDE
     Indication: Sinusitis
     Dosage: 5 FEB 2002 ; 15 MAR 2002
  61. PROFEN [Concomitant]
     Active Substance: DEXTROMETHORPHAN HYDRIODIDE\DEXTROMETHORPHAN HYDROBROMIDE\GUAIFENESIN\PSEUDOEPHEDRINE HYDROCHLORIDE
     Indication: Sinus congestion
     Dosage: 5 FEB 2002 ; 15 MAR 2002
  62. SUDAFED [Concomitant]
     Active Substance: PSEUDOEPHEDRINE HYDROCHLORIDE
     Indication: Sinus congestion
     Dosage: 25 MAR 2002 ; 25 MAR 2002
  63. TYLENOL [Concomitant]
     Active Substance: ACETAMINOPHEN
     Indication: Sinus congestion
     Dosage: 25 MAR 2002 ; 25 MAR 2002
  64. ASPIRIN [Concomitant]
     Active Substance: ASPIRIN
     Indication: Headache
     Dosage: 23 MAR 2002 ; 23 MAR 2002, 4 NOV 2004 ; 1 JAN 2006 , 04 NOV 2004 ; 01 JAN 2006
  65. ASPIRIN [Concomitant]
     Active Substance: ASPIRIN
     Indication: Prophylaxis
  66. RAPAMUNE [Concomitant]
     Active Substance: SIROLIMUS
     Indication: Prophylaxis
     Dosage: 27 APR 2002 ; 9 MAY 2002 ; 28 APR 2002 ; 8 MAY 2002, 9 MAY 2002 ; 19 JUN 2002, 20 JUN 2002 ; 24 JUN
  67. MAGNESIUM [Concomitant]
     Active Substance: MAGNESIUM
     Indication: Hypomagnesaemia
     Dosage: 14 MAY 2002 ; 15 JUL 2002, 16 JUL 2002 ; 5 JAN 2003, 16 JUL 2002 ; 5 JAN 2003
  68. ATACAND [Concomitant]
     Active Substance: CANDESARTAN CILEXETIL
     Indication: Hypertension
     Dosage: 4 JUN 2002 ; 15 AUG 2002, 16 AUG 2002 ; 21 APR 2003 , 22 APR 2003 ; 5 APR 2005, 06 APR 2005 ; 06 JUN
  69. FLAGYL [Concomitant]
     Active Substance: METRONIDAZOLE\METRONIDAZOLE HYDROCHLORIDE
     Indication: Infection
     Dosage: 10 MAY 2002 ; 24 MAY 2002
  70. FLAGYL [Concomitant]
     Active Substance: METRONIDAZOLE\METRONIDAZOLE HYDROCHLORIDE
     Indication: Infection
     Dosage: 10 MAY 2002 ; 24 MAY 2002
  71. CECLOR [Concomitant]
     Active Substance: CEFACLOR
     Indication: Urinary tract infection
     Dosage: 6 MAY 2002 ; 13 MAY 2002
  72. MYCOSTATIN [Concomitant]
     Active Substance: NYSTATIN
     Indication: Candida infection
     Dosage: 6 MAY 2002 ; 15 MAY 2002 ;
  73. LIPITOR [Concomitant]
     Active Substance: ATORVASTATIN CALCIUM
     Indication: Low density lipoprotein increased
     Dosage: 17 AUG 2002 ; 20 FEB 2003
  74. LIPITOR [Concomitant]
     Active Substance: ATORVASTATIN CALCIUM
     Dosage: 17 AUG 2002 ; 20 FEB 2003
  75. LIPITOR [Concomitant]
     Active Substance: ATORVASTATIN CALCIUM
     Dosage: 17 AUG 2002 ; 20 FEB 2003
  76. LIPITOR [Concomitant]
     Active Substance: ATORVASTATIN CALCIUM
     Dosage: 17 AUG 2002 ; 20 FEB 2003
  77. LANTUS [Concomitant]
     Active Substance: INSULIN GLARGINE
     Indication: Blood glucose
     Dosage: 19 AUG 2002 ; 22 AUG 2002 ; OTHER, SPECIFY ;
  78. LANTUS [Concomitant]
     Active Substance: INSULIN GLARGINE
     Dosage: 17 AUG 2002 ; 20 FEB 2003
  79. FERROUS SULFATE [Concomitant]
     Active Substance: FERROUS SULFATE
     Indication: Anaemia
     Dosage: 30 JAN 2003 ; 18 APR 2003 ;
  80. FERROUS SULFATE [Concomitant]
     Active Substance: FERROUS SULFATE
     Dosage: 17 AUG 2002 ; 20 FEB 2003
  81. XANAX [Concomitant]
     Active Substance: ALPRAZOLAM
     Indication: Insomnia
     Dosage: 1 MAR 2003 ; 25 JUN 2003 ; OTHER, SPECIFY ;
  82. XANAX [Concomitant]
     Active Substance: ALPRAZOLAM
     Indication: Insomnia
     Dosage: 1 MAR 2003 ; 25 JUN 2003 ; OTHER, SPECIFY ;
  83. VITAMIN B12 [Concomitant]
     Active Substance: CYANOCOBALAMIN
     Indication: Anaemia
     Dosage: 1 JAN 2003 ; 21 MAY 2003 ; OTHER, SPECIFY ;
  84. LOVENOX [Concomitant]
     Active Substance: ENOXAPARIN SODIUM
     Indication: Prophylaxis
     Dosage: 19 OCT 2002 ; 26 OCT 2002 ; OTHER, SPECIFY ;
  85. TRENTAL [Concomitant]
     Active Substance: PENTOXIFYLLINE
     Indication: Prophylaxis
     Dosage: 3 NOV 2002 ; 8 NOV 2002 ; OTHER, SPECIFY ;
  86. KEFLEX [Concomitant]
     Active Substance: CEPHALEXIN
     Indication: Infection
     Dosage: 4 NOV 2002 ; 11 NOV 2002 ;
  87. COMTREX [Concomitant]
     Indication: Sinusitis
     Dosage: 10 APR 2003 ; 20 APR 2003 ; OTHER, SPECIFY ;
  88. COMTREX [Concomitant]
     Dosage: 10 APR 2003 ; 20 APR 2003 ; OTHER, SPECIFY ;
  89. XYLOCAINE [Concomitant]
     Active Substance: LIDOCAINE HYDROCHLORIDE
     Indication: Anaesthesia
     Dosage: 10 APR 2003 ; 20 APR 2003 ; OTHER, SPECIFY ;
  90. XYLOCAINE [Concomitant]
     Active Substance: LIDOCAINE HYDROCHLORIDE
     Dosage: 10 APR 2003 ; 20 APR 2003 ; OTHER, SPECIFY ;
  91. TOPROL XL [Concomitant]
     Active Substance: METOPROLOL SUCCINATE
     Indication: Hypertension
     Dosage: 12 JUN 2003 ; 19 JUN 2003 ; OTHER, SPECIFY ;
  92. ELIDEL [Concomitant]
     Active Substance: PIMECROLIMUS
     Indication: Eczema
     Dosage: 17 APR 2003 ; 27 JUN 2003 ; OTHER, SPECIFY ;
  93. ZINC [Concomitant]
     Active Substance: ZINC
     Indication: Impaired healing
     Dosage: 17 APR 2003 ; 27 JUN 2003 ; OTHER, SPECIFY ;
  94. ATIVAN [Concomitant]
     Active Substance: LORAZEPAM
     Indication: Insomnia
     Dosage: 24 OCT 2003 ; 26 OCT 2003 ; OTHER, SPECIFY ;
  95. ULTRACET [Concomitant]
     Active Substance: ACETAMINOPHEN\TRAMADOL HYDROCHLORIDE
     Indication: Incision site pain
     Dosage: 19 AUG 2003 ; 19 AUG 2003
  96. ADVIL [Concomitant]
     Active Substance: IBUPROFEN
     Indication: Arthralgia
     Dosage: 01 OCT 2005 ; OTHER, SPECIFY ;
  97. NASONEX [Concomitant]
     Active Substance: MOMETASONE FUROATE
     Indication: Multiple allergies
     Dosage: 01 JAN 2006
  98. FISH OIL [Concomitant]
     Active Substance: FISH OIL
     Indication: Blood cholesterol
     Dosage: 01 JAN 2006
  99. FISH OIL [Concomitant]
     Active Substance: FISH OIL
     Dosage: 01 JAN 2006
  100. CRESTOR [Concomitant]
     Active Substance: ROSUVASTATIN CALCIUM
     Indication: Blood cholesterol
     Dosage: 01 OCT 2007 ; OTHER, SPECIFY

REACTIONS (1)
  - Hypoaesthesia oral [Not Recovered/Not Resolved]

NARRATIVE: CASE EVENT DATE: 20250506
